FAERS Safety Report 16127397 (Version 1)
Quarter: 2019Q1

REPORT INFORMATION
  Report Type: Spontaneous
  Country: GB (occurrence: GB)
  Receive Date: 20190328
  Receipt Date: 20190328
  Transmission Date: 20190418
  Serious: Yes (Disabling)
  Sender: FDA-Public Use
  Company Number: GB-ACCORD-115413

PATIENT
  Age: 78 Year
  Sex: Male
  Weight: 102 kg

DRUGS (12)
  1. AMITRIPTYLINE [Concomitant]
     Active Substance: AMITRIPTYLINE
     Dosage: NIGHTLY
     Dates: start: 20180618
  2. CODEINE [Concomitant]
     Active Substance: CODEINE
     Dosage: 1-2 WHEN REQUIRED IF REQUIRED EVERY 6 HOURS FOR...
     Dates: start: 20161024
  3. GABAPENTIN. [Concomitant]
     Active Substance: GABAPENTIN
     Dosage: TO USE INCREASING  DOSE TO 600 MG TDS EVENTUALL...
     Dates: start: 20180618
  4. LEVOTHYROXINE. [Concomitant]
     Active Substance: LEVOTHYROXINE
     Dates: start: 20180618
  5. RANITIDINE. [Concomitant]
     Active Substance: RANITIDINE
     Dates: start: 20170519
  6. DIAZEPAM. [Concomitant]
     Active Substance: DIAZEPAM
     Dosage: ONE OR TWO TABLET TO BE TAKEN WHEN NEEDED, UPTO
     Dates: start: 20181214, end: 20181218
  7. METHOTREXATE. [Suspect]
     Active Substance: METHOTREXATE
     Indication: PRODUCT USED FOR UNKNOWN INDICATION
     Dosage: 20MG (EIGHT TABLETS)
     Dates: start: 20180720, end: 20181231
  8. PARACETAMOL [Concomitant]
     Active Substance: ACETAMINOPHEN
     Indication: PAIN
     Dosage: 2 FOUR TIMES A DAY WHEN REQUIRED FOR FOR FOR PAIN
     Dates: start: 20170519
  9. PROPRANOLOL [Concomitant]
     Active Substance: PROPRANOLOL HYDROCHLORIDE
     Dosage: TAKE ONE UP TO 3 TIMES/DAY
     Dates: start: 20181213
  10. PREDNISOLONE. [Concomitant]
     Active Substance: PREDNISOLONE
     Dosage: IN THE MORNING EVERY DAY FOR ONE WEEK
     Dates: start: 20180712
  11. AMOXICILLIN. [Concomitant]
     Active Substance: AMOXICILLIN
     Dates: start: 20180918, end: 20180920
  12. FOLIC ACID. [Concomitant]
     Active Substance: FOLIC ACID
     Dosage: ONE TABLET ONCE DAILY EXCEPT ON THE DAY THAT TH...
     Dates: start: 20180712

REACTIONS (2)
  - Panic disorder [Recovering/Resolving]
  - Anxiety [Unknown]

NARRATIVE: CASE EVENT DATE: 20181231
